FAERS Safety Report 24165228 (Version 1)
Quarter: 2024Q3

REPORT INFORMATION
  Report Type: Other
  Country: IN (occurrence: IN)
  Receive Date: 20240802
  Receipt Date: 20240802
  Transmission Date: 20241017
  Serious: Yes (Hospitalization, Other)
  Sender: NUVO PHARMACEUTICALS
  Company Number: IN-Nuvo Pharmaceuticals Inc-2159912

PATIENT
  Age: 74 Year
  Sex: Female

DRUGS (24)
  1. CHLORDIAZEPOXIDE HYDROCHLORIDE\CLIDINIUM BROMIDE [Suspect]
     Active Substance: CHLORDIAZEPOXIDE HYDROCHLORIDE\CLIDINIUM BROMIDE
     Indication: Abdominal symptom
     Route: 065
  2. SPIRONOLACTONE [Concomitant]
     Active Substance: SPIRONOLACTONE
     Route: 065
  3. ETIZOLAM [Concomitant]
     Active Substance: ETIZOLAM
     Route: 065
  4. Atorvastatin/Clopidogrel [Concomitant]
     Route: 065
  5. METFORMIN [Concomitant]
     Active Substance: METFORMIN HYDROCHLORIDE
     Route: 065
  6. FORMOTEROL [Concomitant]
     Active Substance: FORMOTEROL
     Route: 065
  7. FLUTICASONE [Concomitant]
     Active Substance: FLUTICASONE
     Route: 065
  8. SILODOSIN [Concomitant]
     Active Substance: SILODOSIN
     Route: 065
  9. BETHANECHOL CHLORIDE [Concomitant]
     Active Substance: BETHANECHOL CHLORIDE
     Route: 065
  10. ESCITALOPRAM [Concomitant]
     Active Substance: ESCITALOPRAM OXALATE
     Route: 065
  11. Montelukast/Acebrophylline [Concomitant]
     Route: 065
  12. VILDAGLIPTIN [Concomitant]
     Active Substance: VILDAGLIPTIN
     Route: 065
  13. GLICLAZIDE [Concomitant]
     Active Substance: GLICLAZIDE
     Route: 065
  14. Insulin in Dextrose [Concomitant]
     Route: 065
  15. ALBUTEROL [Concomitant]
     Active Substance: ALBUTEROL
     Route: 065
  16. VITAMIN D [Concomitant]
     Active Substance: VITAMIN D NOS
     Route: 065
  17. INSULIN GLARGINE [Concomitant]
     Active Substance: INSULIN GLARGINE
     Route: 065
  18. BETAHISTINE [Concomitant]
     Active Substance: BETAHISTINE
     Route: 065
  19. PRAMIPEXOLE [Concomitant]
     Active Substance: PRAMIPEXOLE\PRAMIPEXOLE DIHYDROCHLORIDE
     Route: 065
  20. CARBIDOPA AND LEVODOPA [Concomitant]
     Active Substance: CARBIDOPA\LEVODOPA
     Route: 065
  21. ATORVASTATIN CALCIUM [Concomitant]
     Active Substance: ATORVASTATIN CALCIUM
     Route: 065
  22. ACETAMINOPHEN [Concomitant]
     Active Substance: ACETAMINOPHEN
     Route: 065
  23. Levosulpiride/Rabeprazole [Concomitant]
     Route: 065
  24. VALPROATE SODIUM [Concomitant]
     Active Substance: VALPROATE SODIUM
     Route: 065

REACTIONS (1)
  - Urinary retention [Recovering/Resolving]
